FAERS Safety Report 6477725-X (Version None)
Quarter: 2009Q4

REPORT INFORMATION
  Report Type: 
  Country: None (occurrence: None)
  Receive Date: 20091203
  Receipt Date: 20091203
  Transmission Date: 20100525
  Serious: Yes (Other)
  Sender: FDA-Public Use
  Company Number: None

PATIENT
  Sex: Male
  Weight: 124.2856 kg

DRUGS (1)
  1. REMICADE [Suspect]
     Indication: PSORIASIS
     Dosage: 8MG/KG= 996MG DOSED AT 1000MG Q8WK IV DRIP
     Route: 041
     Dates: start: 20070503

REACTIONS (1)
  - ADENOCARCINOMA [None]
